FAERS Safety Report 6405889-2 (Version None)
Quarter: 2009Q4

REPORT INFORMATION
  Report Type: 
  Country: None (occurrence: None)
  Receive Date: 20091016
  Receipt Date: 20091016
  Transmission Date: 20100525
  Serious: Yes (Other)
  Sender: FDA-Public Use
  Company Number: None

PATIENT
  Age: 53 Year
  Sex: Female
  Weight: 58.0604 kg

DRUGS (3)
  1. ACIPHEX [Suspect]
     Indication: GASTROOESOPHAGEAL REFLUX DISEASE
     Dosage: 20MG DAILY PO 20MG. EOD THEN EVERY 3 DA PO
     Route: 048
     Dates: start: 20081104, end: 20091001
  2. ACIPHEX [Suspect]
     Indication: HIATUS HERNIA
     Dosage: 20MG DAILY PO 20MG. EOD THEN EVERY 3 DA PO
     Route: 048
     Dates: start: 20081104, end: 20091001
  3. AMLODIPINE [Concomitant]

REACTIONS (1)
  - GASTRIC POLYPS [None]
